FAERS Safety Report 7253771-3 (Version None)
Quarter: 2011Q1

REPORT INFORMATION
  Report Type: 
  Country: None (occurrence: None)
  Receive Date: 20110129
  Receipt Date: 20100203
  Transmission Date: 20110831
  Serious: No
  Sender: FDA-Public Use
  Company Number: US-ABBOTT-10P-163-0623996-00

PATIENT
  Sex: Female
  Weight: 81.72 kg

DRUGS (6)
  1. HUMIRA [Suspect]
     Dates: start: 20100119, end: 20100119
  2. HUMIRA [Suspect]
     Indication: CROHN'S DISEASE
     Dates: start: 20100104, end: 20100104
  3. HUMIRA [Suspect]
     Dates: start: 20100202
  4. ENTOCORT EC [Concomitant]
     Indication: CROHN'S DISEASE
  5. LEVOXYL [Concomitant]
     Indication: HYPOTHYROIDISM
  6. PROMETHAZINE [Concomitant]
     Indication: NAUSEA

REACTIONS (2)
  - ABDOMINAL PAIN [None]
  - CROHN'S DISEASE [None]
